FAERS Safety Report 4694502-0 (Version None)
Quarter: 2005Q2

REPORT INFORMATION
  Report Type: 
  Country: None (occurrence: None)
  Receive Date: 20050620
  Receipt Date: 20040330
  Transmission Date: 20051028
  Serious: Yes (Hospitalization)
  Sender: FDA-Public Use
  Company Number: 200411111JP

PATIENT
  Age: 56 Year
  Sex: Female

DRUGS (12)
  1. ARAVA [Suspect]
     Indication: RHEUMATOID ARTHRITIS
     Route: 048
     Dates: start: 20040122, end: 20040325
  2. PREDONINE [Concomitant]
     Route: 048
  3. NORVASC [Concomitant]
     Route: 048
  4. LONGES [Concomitant]
     Route: 048
  5. PREMARIN [Concomitant]
     Route: 048
  6. PROVERA [Concomitant]
     Route: 048
  7. TAKEPRON [Concomitant]
     Route: 048
  8. LASIX [Concomitant]
     Route: 048
  9. CLINORIL [Concomitant]
     Route: 048
  10. ONE-ALPHA [Concomitant]
     Route: 048
  11. LENDORM [Concomitant]
     Route: 048
  12. HALCION [Concomitant]
     Route: 048

REACTIONS (6)
  - ALANINE AMINOTRANSFERASE INCREASED [None]
  - ASPARTATE AMINOTRANSFERASE INCREASED [None]
  - BLOOD ALKALINE PHOSPHATASE INCREASED [None]
  - BLOOD BILIRUBIN INCREASED [None]
  - BLOOD LACTATE DEHYDROGENASE INCREASED [None]
  - GAMMA-GLUTAMYLTRANSFERASE INCREASED [None]
